FAERS Safety Report 13126441 (Version 1)
Quarter: 2017Q1

REPORT INFORMATION
  Report Type: Spontaneous
  Country: US (occurrence: US)
  Receive Date: 20170118
  Receipt Date: 20170118
  Transmission Date: 20170428
  Serious: No
  Sender: FDA-Public Use
  Company Number: US-009507513-1701USA006094

PATIENT
  Age: 59 Year
  Sex: Female

DRUGS (2)
  1. DULERA [Concomitant]
     Active Substance: FORMOTEROL FUMARATE DIHYDRATE\MOMETASONE FUROATE
  2. NASONEX [Suspect]
     Active Substance: MOMETASONE FUROATE
     Indication: POLYP
     Dosage: 2 SPRAYS ONCE DAILY
     Route: 045
     Dates: start: 201409

REACTIONS (3)
  - Product use issue [Unknown]
  - Nasal congestion [Not Recovered/Not Resolved]
  - Drug dose omission [Unknown]

NARRATIVE: CASE EVENT DATE: 201409
